FAERS Safety Report 5749606-8 (Version None)
Quarter: 2008Q2

REPORT INFORMATION
  Report Type: 
  Country: None (occurrence: None)
  Receive Date: 20080522
  Receipt Date: 20080522
  Transmission Date: 20081010
  Serious: Yes (Death, Hospitalization)
  Sender: FDA-Public Use
  Company Number: None

PATIENT
  Age: 77 Year
  Sex: Male

DRUGS (1)
  1. ZETIA [Suspect]
     Indication: BLOOD CHOLESTEROL

REACTIONS (7)
  - ABDOMINAL PAIN UPPER [None]
  - ARRHYTHMIA [None]
  - ASPIRATION [None]
  - FALL [None]
  - MALAISE [None]
  - MOOD ALTERED [None]
  - SPEECH DISORDER [None]
